FAERS Safety Report 23030550 (Version 2)
Quarter: 2023Q4

REPORT INFORMATION
  Report Type: Spontaneous
  Country: US (occurrence: US)
  Receive Date: 20231005
  Receipt Date: 20231124
  Transmission Date: 20240109
  Serious: Yes (Death, Life-Threatening, Hospitalization, Other)
  Sender: FDA-Public Use
  Company Number: US-GRANULES-US-2023GRALIT00246

PATIENT
  Age: 27 Year
  Sex: Male

DRUGS (1)
  1. BUPROPION HYDROCHLORIDE [Suspect]
     Active Substance: BUPROPION HYDROCHLORIDE
     Indication: Product used for unknown indication
     Dosage: 113 TABLETS
     Route: 048

REACTIONS (9)
  - Renal injury [Unknown]
  - Toxicity to various agents [Unknown]
  - Generalised tonic-clonic seizure [Unknown]
  - Cardiac arrest [Fatal]
  - Ventricular fibrillation [Unknown]
  - Hypotension [Unknown]
  - Agitation [Unknown]
  - Confusional state [Unknown]
  - Intentional overdose [Unknown]
